FAERS Safety Report 7105513-X (Version None)
Quarter: 2010Q4

REPORT INFORMATION
  Report Type: 
  Country: None (occurrence: None)
  Receive Date: 20101116
  Receipt Date: 20101108
  Transmission Date: 20110411
  Serious: Yes (Other)
  Sender: FDA-Public Use
  Company Number: BR-ROCHE-731702

PATIENT
  Sex: Female
  Weight: 92 kg

DRUGS (5)
  1. TOCILIZUMAB [Suspect]
     Indication: RHEUMATOID ARTHRITIS
     Dosage: FORM: INFUSION
     Route: 042
     Dates: start: 20100316
  2. ENALAPRIL MALEATE [Concomitant]
  3. SIMVASTATIN [Concomitant]
  4. CALCIUM [Concomitant]
  5. VITAMIN A [Concomitant]

REACTIONS (3)
  - BLOOD CHOLESTEROL INCREASED [None]
  - HYPERTENSION [None]
  - WEIGHT INCREASED [None]
